FAERS Safety Report 11167537 (Version 2)
Quarter: 2015Q2

REPORT INFORMATION
  Report Type: Spontaneous
  Country: US (occurrence: US)
  Receive Date: 20150605
  Receipt Date: 20150612
  Transmission Date: 20150821
  Serious: Yes (Hospitalization, Other)
  Sender: FDA-Public Use
  Company Number: US-UCBSA-2015017620

PATIENT
  Age: 83 Year
  Sex: Male
  Weight: 74.83 kg

DRUGS (9)
  1. VIMPAT [Suspect]
     Active Substance: LACOSAMIDE
     Indication: SEIZURE
     Dosage: 100 MG, 2X/DAY (BID)
     Route: 048
     Dates: start: 20140909, end: 201505
  2. SEROQUEL [Concomitant]
     Active Substance: QUETIAPINE FUMARATE
     Indication: PRODUCT USED FOR UNKNOWN INDICATION
     Dosage: 12.5 MG, ONCE DAILY (QD)
     Route: 048
  3. IMIPRAMINE [Concomitant]
     Active Substance: IMIPRAMINE
     Indication: PRODUCT USED FOR UNKNOWN INDICATION
     Dosage: 10 MG, ONCE DAILY (QD)
     Route: 048
  4. PANTOPRAZOLE [Concomitant]
     Active Substance: PANTOPRAZOLE SODIUM
     Indication: GASTROOESOPHAGEAL REFLUX DISEASE
     Dosage: 40 MG, ONCE DAILY (QD)
     Route: 048
  5. ALFUZOSIN [Concomitant]
     Active Substance: ALFUZOSIN
     Indication: PROSTATOMEGALY
     Dosage: 10 MG, ONCE DAILY (QD)
     Route: 048
  6. CORTISONE ACETATE. [Concomitant]
     Active Substance: CORTISONE ACETATE
     Indication: PRODUCT USED FOR UNKNOWN INDICATION
     Dosage: 25 MG EVERY MORNING (QAM) AND 12.5MG EVERY EVENING (QPM), 2X/DAY (BID)
     Route: 048
  7. ZOLOFT [Concomitant]
     Active Substance: SERTRALINE HYDROCHLORIDE
     Indication: PRODUCT USED FOR UNKNOWN INDICATION
     Dosage: 50 MG, ONCE DAILY (QD)
     Route: 048
  8. VIMPAT [Suspect]
     Active Substance: LACOSAMIDE
     Dosage: 100 MG, ONCE DAILY (QD)
     Route: 048
     Dates: start: 201505, end: 20150531
  9. DONEPEZIL [Concomitant]
     Active Substance: DONEPEZIL
     Indication: DEMENTIA
     Dosage: 5 MG, 2X/DAY (BID)
     Route: 048

REACTIONS (5)
  - Lymphoedema [Not Recovered/Not Resolved]
  - Fall [Recovered/Resolved]
  - Carcinoid tumour [Not Recovered/Not Resolved]
  - Diverticulitis [Recovered/Resolved]
  - Intervertebral disc compression [Not Recovered/Not Resolved]

NARRATIVE: CASE EVENT DATE: 201504
